FAERS Safety Report 11323415 (Version 1)
Quarter: 2015Q3

REPORT INFORMATION
  Report Type: Spontaneous
  Country: FR (occurrence: FR)
  Receive Date: 20150730
  Receipt Date: 20150730
  Transmission Date: 20151125
  Serious: Yes (Hospitalization)
  Sender: FDA-Public Use
  Company Number: FR-ROCHE-1615232

PATIENT
  Age: 70 Year
  Sex: Female

DRUGS (10)
  1. ZELBORAF [Suspect]
     Active Substance: VEMURAFENIB
     Indication: LUNG CANCER METASTATIC
     Dosage: IN THE MORNING AND EVENING
     Route: 048
     Dates: start: 20150529
  2. ZOMETA [Concomitant]
     Active Substance: ZOLEDRONIC ACID
     Route: 042
     Dates: start: 20150620
  3. XANAX [Concomitant]
     Active Substance: ALPRAZOLAM
  4. OXYCONTIN (OXYCODONE) [Concomitant]
  5. ESOMEPRAZOLE [Concomitant]
     Active Substance: ESOMEPRAZOLE
  6. ZELBORAF [Suspect]
     Active Substance: VEMURAFENIB
     Dosage: 25% REDUCED DOSE
     Route: 048
     Dates: start: 20150713
  7. PRIMPERAN [Concomitant]
     Active Substance: METOCLOPRAMIDE HYDROCHLORIDE
  8. ZELBORAF [Suspect]
     Active Substance: VEMURAFENIB
     Dosage: IN THE MORNING AND EVENING
     Route: 048
     Dates: start: 20150702
  9. CORTANCYL [Concomitant]
     Active Substance: PREDNISONE
  10. CACIT D3 [Concomitant]
     Active Substance: CALCIUM\CHOLECALCIFEROL

REACTIONS (1)
  - Renal failure [Recovered/Resolved]

NARRATIVE: CASE EVENT DATE: 20150624
